FAERS Safety Report 21713244 (Version 1)
Quarter: 2022Q4

REPORT INFORMATION
  Report Type: Spontaneous
  Country: US (occurrence: None)
  Receive Date: 20221208
  Receipt Date: 20221208
  Transmission Date: 20230113
  Serious: No
  Sender: FDA-Public Use
  Company Number: None

PATIENT
  Age: 76 Year
  Sex: Male

DRUGS (1)
  1. TASIGNA [Suspect]
     Active Substance: NILOTINIB
     Dosage: OTHER QUANTITY : 300MG, 150MG;?FREQUENCY : TWICE A DAY;?
     Route: 048
     Dates: start: 202207, end: 202211

REACTIONS (2)
  - Pneumonia bacterial [None]
  - Therapy interrupted [None]

NARRATIVE: CASE EVENT DATE: 20221128
